FAERS Safety Report 12819302 (Version 1)
Quarter: 2016Q4

REPORT INFORMATION
  Report Type: Spontaneous
  Country: US (occurrence: US)
  Receive Date: 20161006
  Receipt Date: 20161006
  Transmission Date: 20170207
  Serious: Yes (Hospitalization)
  Sender: FDA-Public Use
  Company Number: None

PATIENT
  Age: 74 Year
  Sex: Female
  Weight: 66.1 kg

DRUGS (2)
  1. CARBOPLATIN. [Suspect]
     Active Substance: CARBOPLATIN
     Dates: end: 20160913
  2. TAXOL [Suspect]
     Active Substance: PACLITAXEL
     Dates: end: 20160913

REACTIONS (5)
  - Dehydration [None]
  - Cerebral artery embolism [None]
  - Diplopia [None]
  - Vision blurred [None]
  - Cerebral infarction [None]

NARRATIVE: CASE EVENT DATE: 20160929
